FAERS Safety Report 21672645 (Version 1)
Quarter: 2022Q4

REPORT INFORMATION
  Report Type: Report from Study
  Country: US (occurrence: US)
  Receive Date: 20221202
  Receipt Date: 20221202
  Transmission Date: 20230113
  Serious: Yes (Hospitalization)
  Sender: FDA-Public Use
  Company Number: US-Taiho Oncology Inc-EU-2022-01706

PATIENT
  Age: 66 Year
  Sex: Male
  Weight: 79.9 kg

DRUGS (28)
  1. FUTIBATINIB [Suspect]
     Active Substance: FUTIBATINIB
     Indication: Non-small cell lung cancer metastatic
     Dosage: CYCLE 1-2
     Route: 048
     Dates: start: 20220610, end: 20220704
  2. BINIMETINIB [Suspect]
     Active Substance: BINIMETINIB
     Indication: Non-small cell lung cancer metastatic
     Dosage: LEAD IN PHASE: 03/JUN/2022-09/JUN/2022  ?CYCLE 1-2: START DATE 10/JUN/2022; DATE OF LAST DOSE 04/JUL
     Route: 048
     Dates: start: 20220603, end: 20220704
  3. MEPRON [Concomitant]
     Active Substance: ATOVAQUONE
     Indication: Product used for unknown indication
     Dosage: 750 MG/5 ML SUSPENSION WITH BREAKFAST FOR 30 DAYS.
     Route: 048
  4. DILAUDID [Concomitant]
     Active Substance: HYDROMORPHONE HYDROCHLORIDE
     Indication: Pain
     Dosage: TAKE ONE-HALF TABLET
     Route: 048
  5. DELTASONE [Concomitant]
     Active Substance: PREDNISONE
     Indication: Product used for unknown indication
     Route: 048
     Dates: start: 20220715, end: 20220729
  6. DELTASONE [Concomitant]
     Active Substance: PREDNISONE
     Route: 048
     Dates: start: 20220730, end: 20220806
  7. DELTASONE [Concomitant]
     Active Substance: PREDNISONE
     Route: 048
     Dates: start: 20220807, end: 20220813
  8. DELTASONE [Concomitant]
     Active Substance: PREDNISONE
     Route: 048
     Dates: start: 20220814, end: 20220820
  9. DELTASONE [Concomitant]
     Active Substance: PREDNISONE
     Dosage: TO O 27/AUG/2022, TAKE 3 TABLETS (30MG)?DAILY FROM 28/AUG/2022 TO 03/SEP/2022, TAKE 2 TABLETS (20MG)
     Route: 048
     Dates: start: 20220821, end: 20220827
  10. DELTASONE [Concomitant]
     Active Substance: PREDNISONE
     Route: 048
     Dates: start: 20220828, end: 20220903
  11. DELTASONE [Concomitant]
     Active Substance: PREDNISONE
     Route: 048
     Dates: start: 20220904, end: 20220910
  12. DELTASONE [Concomitant]
     Active Substance: PREDNISONE
     Dates: start: 20220911
  13. ASPIRINE EC [Concomitant]
     Indication: Product used for unknown indication
  14. WELLBUTRIN XL [Concomitant]
     Active Substance: BUPROPION HYDROCHLORIDE
     Indication: Product used for unknown indication
  15. CLEOCIN T [Concomitant]
     Active Substance: CLINDAMYCIN PHOSPHATE
     Indication: Product used for unknown indication
     Route: 061
  16. LOMOTIL [Concomitant]
     Active Substance: ATROPINE SULFATE\DIPHENOXYLATE HYDROCHLORIDE
     Indication: Diarrhoea
     Dosage: 2.5 MG-0.025 MG. NOT TO EXCEED 8?TABLETS PER DAY
     Route: 048
  17. DRISDOL [Concomitant]
     Active Substance: ERGOCALCIFEROL
     Indication: Product used for unknown indication
  18. LEXAPRO [Concomitant]
     Active Substance: ESCITALOPRAM OXALATE
     Indication: Product used for unknown indication
  19. PEPCID [ALUMINIUM HYDROXIDE;MAGNESIUM TRISILICATE;SODIUM ALGINATE] [Concomitant]
     Indication: Product used for unknown indication
  20. DURAGESIC [Concomitant]
     Active Substance: FENTANYL
     Indication: Product used for unknown indication
     Dosage: PLACE 1 PATCH ON THE SKIN EVERY 72 HOURS. REMOVE OLD PATCH(ES) BEFORE REPLACING NEW PATCH(ES).
     Route: 062
  21. FOLVITE [FOLIC ACID] [Concomitant]
     Indication: Product used for unknown indication
  22. LASIX [Concomitant]
     Active Substance: FUROSEMIDE
     Indication: Product used for unknown indication
  23. METAMUCIL THERAPY FOR REGULARITY [Concomitant]
     Active Substance: PSYLLIUM HUSK
     Indication: Product used for unknown indication
     Route: 048
  24. LOPRESSOR [Concomitant]
     Active Substance: METOPROLOL TARTRATE
     Indication: Product used for unknown indication
  25. PROTONIX [Concomitant]
     Active Substance: PANTOPRAZOLE SODIUM
     Indication: Product used for unknown indication
     Dosage: EC
  26. MIRALAX [Concomitant]
     Active Substance: POLYETHYLENE GLYCOL 3350
     Indication: Product used for unknown indication
     Dosage: PACKET.
  27. K-DUR [Concomitant]
     Active Substance: POTASSIUM CHLORIDE
     Indication: Product used for unknown indication
  28. KLOR-CON M20 [Concomitant]
     Active Substance: POTASSIUM CHLORIDE
     Indication: Product used for unknown indication

REACTIONS (2)
  - Diarrhoea [Recovered/Resolved]
  - Pleural effusion [Recovered/Resolved]

NARRATIVE: CASE EVENT DATE: 20220704
